FAERS Safety Report 11108358 (Version 1)
Quarter: 2015Q2

REPORT INFORMATION
  Report Type: Report from Study
  Country: DE (occurrence: DE)
  Receive Date: 20150512
  Receipt Date: 20150512
  Transmission Date: 20150821
  Serious: Yes (Death, Other)
  Sender: FDA-Public Use
  Company Number: DE-SPECTRUM PHARMACEUTICALS, INC.-06-Z-DE-00019

PATIENT
  Age: 64 Year
  Sex: Male

DRUGS (3)
  1. ZEVALIN [Suspect]
     Active Substance: IBRITUMOMAB TIUXETAN
     Dosage: UNK
     Route: 042
     Dates: start: 20060223, end: 20060223
  2. ZEVALIN [Suspect]
     Active Substance: IBRITUMOMAB TIUXETAN
     Indication: MANTLE CELL LYMPHOMA
     Dosage: 0.3 MILLICURIES PER KILOGRAM, SINGLE
     Route: 042
     Dates: start: 20060302, end: 20060302
  3. RITUXIMAB [Concomitant]
     Active Substance: RITUXIMAB
     Indication: MANTLE CELL LYMPHOMA
     Route: 042

REACTIONS (7)
  - Anaemia [Unknown]
  - Haemorrhage [Fatal]
  - Subdural haematoma [Fatal]
  - Fall [Unknown]
  - Traumatic haematoma [Unknown]
  - Thrombocytopenia [Fatal]
  - Contusion [Unknown]

NARRATIVE: CASE EVENT DATE: 20060523
